FAERS Safety Report 12657761 (Version 5)
Quarter: 2018Q1

REPORT INFORMATION
  Report Type: Report from Study
  Country: US (occurrence: US)
  Receive Date: 20160816
  Receipt Date: 20180122
  Transmission Date: 20180508
  Serious: Yes (Hospitalization, Other)
  Sender: FDA-Public Use
  Company Number: US-ACTELION-A-NJ2016-140647

PATIENT
  Age: 71 Year
  Sex: Female
  Weight: 98.41 kg

DRUGS (3)
  1. LAMICTAL [Concomitant]
     Active Substance: LAMOTRIGINE
  2. OPSUMIT [Suspect]
     Active Substance: MACITENTAN
     Indication: PULMONARY ARTERIAL HYPERTENSION
     Dosage: 10 MG, QD
     Route: 048
     Dates: start: 20160708
  3. TOPAMAX [Suspect]
     Active Substance: TOPIRAMATE
     Indication: PRODUCT USED FOR UNKNOWN INDICATION
     Route: 065

REACTIONS (15)
  - Vascular device user [Unknown]
  - Pneumonitis [Unknown]
  - Hypersomnia [Unknown]
  - Irritability [Unknown]
  - Weight increased [Unknown]
  - Pruritus [Unknown]
  - Seizure [Unknown]
  - Altered state of consciousness [Unknown]
  - Fatigue [Unknown]
  - Petit mal epilepsy [Unknown]
  - Toxicity to various agents [Unknown]
  - Musculoskeletal stiffness [Unknown]
  - Condition aggravated [Unknown]
  - Nasal congestion [Unknown]
  - Amnesia [Unknown]
